FAERS Safety Report 7509186-3 (Version None)
Quarter: 2011Q2

REPORT INFORMATION
  Report Type: 
  Country: None (occurrence: None)
  Receive Date: 20110527
  Receipt Date: 20110323
  Transmission Date: 20111010
  Serious: No
  Sender: FDA-Public Use
  Company Number: US-MYLANLABS-2011S1003532

PATIENT
  Age: 54 Year
  Sex: Female

DRUGS (3)
  1. CYMBALTA [Concomitant]
  2. AMITRIPTYLINE HCL [Suspect]
     Indication: MIGRAINE
     Route: 048
     Dates: start: 20110101
  3. AMITRIPTYLINE HCL [Suspect]
     Indication: INSOMNIA
     Route: 048
     Dates: start: 20110101

REACTIONS (3)
  - OFF LABEL USE [None]
  - SWELLING FACE [None]
  - WEIGHT INCREASED [None]
